FAERS Safety Report 19471126 (Version 1)
Quarter: 2021Q2

REPORT INFORMATION
  Report Type: Spontaneous
  Country: US (occurrence: US)
  Receive Date: 20210628
  Receipt Date: 20210628
  Transmission Date: 20210717
  Serious: No
  Sender: FDA-Public Use
  Company Number: None

PATIENT
  Sex: Male

DRUGS (1)
  1. ERLEADA [Suspect]
     Active Substance: APALUTAMIDE
     Indication: PROSTATE CANCER
     Route: 048
     Dates: start: 20201230

REACTIONS (13)
  - Fatigue [None]
  - Alopecia [None]
  - Paraesthesia [None]
  - Scratch [None]
  - Bone neoplasm [None]
  - Aphasia [None]
  - Asthenia [None]
  - Arthralgia [None]
  - Pruritus [None]
  - Hypoaesthesia [None]
  - Memory impairment [None]
  - Fall [None]
  - Balance disorder [None]
